FAERS Safety Report 6066378-0 (Version None)
Quarter: 2009Q1

REPORT INFORMATION
  Report Type: 
  Country: None (occurrence: None)
  Receive Date: 20090205
  Receipt Date: 20090126
  Transmission Date: 20090719
  Serious: Yes (Hospitalization)
  Sender: FDA-Public Use
  Company Number: FR-PFIZER INC-2009161390

PATIENT

DRUGS (5)
  1. AROMASIN [Suspect]
     Dosage: 1 DOSAGE FORM DAILY
     Route: 048
     Dates: start: 20080401, end: 20081208
  2. CELECOXIB [Concomitant]
     Indication: ARTHRITIS
  3. DEXTROPROPOXYPHENE HYDROCHLORIDE [Concomitant]
  4. SOTALOL [Concomitant]
  5. PIRACETAM [Concomitant]

REACTIONS (3)
  - ARTHRALGIA [None]
  - MYALGIA [None]
  - PULMONARY EMBOLISM [None]
